FAERS Safety Report 9308681 (Version 2)
Quarter: 2013Q2

REPORT INFORMATION
  Report Type: Spontaneous
  Country: US (occurrence: US)
  Receive Date: 20130524
  Receipt Date: 20130611
  Transmission Date: 20140414
  Serious: Yes (Other)
  Sender: FDA-Public Use
  Company Number: PHHY2013US050881

PATIENT
  Age: 53 Year
  Sex: Female

DRUGS (5)
  1. ANASTROZOLE [Suspect]
     Indication: BREAST CANCER
  2. ASPIRIN [Concomitant]
     Dosage: 81 MG, QD
  3. VITAMIN D [Concomitant]
     Dosage: 3000 IU, UNK
  4. CALCIUM CITRATE [Concomitant]
     Dosage: 600 MG, DAILY
  5. NITROFURANTOIN [Concomitant]

REACTIONS (10)
  - Lichen sclerosus [Not Recovered/Not Resolved]
  - Vulvovaginal discomfort [Unknown]
  - Dyspareunia [Unknown]
  - Vulvovaginal burning sensation [Unknown]
  - Sexual dysfunction [Unknown]
  - Atrophic vulvovaginitis [Not Recovered/Not Resolved]
  - Vulvovaginal pruritus [Recovered/Resolved]
  - Dysuria [Recovered/Resolved]
  - Vulvovaginal disorder [Unknown]
  - Scar [Not Recovered/Not Resolved]
